FAERS Safety Report 16758867 (Version 1)
Quarter: 2019Q3

REPORT INFORMATION
  Report Type: Report from Study
  Country: US (occurrence: US)
  Receive Date: 20190830
  Receipt Date: 20190830
  Transmission Date: 20191005
  Serious: Yes (Other)
  Sender: FDA-Public Use
  Company Number: US-JNJFOC-20190836730

PATIENT
  Age: 88 Year
  Sex: Male

DRUGS (8)
  1. METAMUCIL [Concomitant]
     Active Substance: PLANTAGO SEED
  2. IMBRUVICA [Suspect]
     Active Substance: IBRUTINIB
     Indication: MANTLE CELL LYMPHOMA
     Dosage: 420 MG, QD
     Route: 048
     Dates: start: 20180401
  3. METOPROLOL. [Concomitant]
     Active Substance: METOPROLOL
  4. OMEPRAZOLE. [Concomitant]
     Active Substance: OMEPRAZOLE
     Indication: DYSPEPSIA
  5. TAMSULOSIN [Concomitant]
     Active Substance: TAMSULOSIN
  6. IMBRUVICA [Suspect]
     Active Substance: IBRUTINIB
     Indication: MANTLE CELL LYMPHOMA
     Dosage: UNK
     Route: 065
     Dates: start: 20131119
  7. MULTIVITAMINS [Concomitant]
     Active Substance: VITAMINS
  8. GABAPENTIN. [Concomitant]
     Active Substance: GABAPENTIN

REACTIONS (4)
  - Dyspepsia [Not Recovered/Not Resolved]
  - Movement disorder [Not Recovered/Not Resolved]
  - Osteoarthritis [Not Recovered/Not Resolved]
  - Musculoskeletal discomfort [Not Recovered/Not Resolved]

NARRATIVE: CASE EVENT DATE: 201906
